FAERS Safety Report 15407646 (Version 1)
Quarter: 2018Q3

REPORT INFORMATION
  Report Type: Spontaneous
  Country: US (occurrence: US)
  Receive Date: 20180920
  Receipt Date: 20180920
  Transmission Date: 20181010
  Serious: Yes (Hospitalization)
  Sender: FDA-Public Use
  Company Number: US-JNJFOC-20180919225

PATIENT
  Sex: Male

DRUGS (1)
  1. INVOKAMET [Suspect]
     Active Substance: CANAGLIFLOZIN\METFORMIN HYDROCHLORIDE
     Indication: DIABETES MELLITUS
     Route: 048

REACTIONS (5)
  - Staphylococcal osteomyelitis [Unknown]
  - Cellulitis [Unknown]
  - Wound dehiscence [Unknown]
  - Diabetic foot infection [Unknown]
  - Foot amputation [Unknown]

NARRATIVE: CASE EVENT DATE: 2016
